FAERS Safety Report 15624319 (Version 3)
Quarter: 2019Q4

REPORT INFORMATION
  Report Type: Spontaneous
  Country: US (occurrence: US)
  Receive Date: 20181116
  Receipt Date: 20191028
  Transmission Date: 20200122
  Serious: Yes (Other)
  Sender: FDA-Public Use
  Company Number: US-PFIZER INC-2018466144

PATIENT
  Age: 83 Year
  Sex: Female

DRUGS (1)
  1. IBRANCE [Suspect]
     Active Substance: PALBOCICLIB
     Indication: BREAST CANCER FEMALE
     Dosage: 125 MG, UNK

REACTIONS (8)
  - Depression [Unknown]
  - Cystocele [Unknown]
  - Dermatitis allergic [Unknown]
  - Cellulitis [Unknown]
  - Constipation [Unknown]
  - Pathological fracture [Recovering/Resolving]
  - Diarrhoea [Unknown]
  - Anxiety [Unknown]
